FAERS Safety Report 22147611 (Version 2)
Quarter: 2023Q4

REPORT INFORMATION
  Report Type: Spontaneous
  Country: CN (occurrence: CN)
  Receive Date: 20230328
  Receipt Date: 20231006
  Transmission Date: 20240110
  Serious: Yes (Life-Threatening, Other)
  Sender: FDA-Public Use
  Company Number: CN-BAYER-2023A040711

PATIENT
  Age: 85 Year
  Sex: Male
  Weight: 60 kg

DRUGS (1)
  1. ULTRAVIST [Suspect]
     Active Substance: IOPROMIDE
     Dosage: 76.89 G, ONCE
     Route: 013
     Dates: start: 20230319, end: 20230319

REACTIONS (5)
  - Laryngeal oedema [Recovering/Resolving]
  - Dyspnoea [Recovering/Resolving]
  - Dysphonia [Recovered/Resolved]
  - Foreign body in throat [Recovering/Resolving]
  - Foreign body in respiratory tract [Recovering/Resolving]

NARRATIVE: CASE EVENT DATE: 20230319
